FAERS Safety Report 24195301 (Version 4)
Quarter: 2025Q4

REPORT INFORMATION
  Report Type: Spontaneous
  Country: EU (occurrence: EU)
  Receive Date: 20240809
  Receipt Date: 20251028
  Transmission Date: 20260117
  Serious: Yes (Other)
  Sender: TAKEDA
  Company Number: None

PATIENT
  Age: 35 Year
  Sex: Female

DRUGS (7)
  1. CANDESARTAN [Suspect]
     Active Substance: CANDESARTAN
     Indication: Hypertension
     Dosage: 4 MILLIGRAM, QD
     Dates: start: 20220725, end: 20230307
  2. BRINTELLIX [Suspect]
     Active Substance: VORTIOXETINE HYDROBROMIDE
     Indication: Depression
     Dosage: 1 DOSAGE FORM, QD
     Dates: start: 202212, end: 20230315
  3. ESOMEPRAZOLE [Suspect]
     Active Substance: ESOMEPRAZOLE
     Indication: Product used for unknown indication
     Dosage: 1 DOSAGE FORM, QD
     Dates: start: 20220725
  4. DESOGESTREL [Suspect]
     Active Substance: DESOGESTREL
     Indication: Contraception
     Dosage: 75 MICROGRAM, QD
     Dates: start: 20220725, end: 20230307
  5. LERCANIDIPINE [Suspect]
     Active Substance: LERCANIDIPINE
     Indication: Hypertension
     Dosage: 10 MILLIGRAM, QD
     Dates: start: 20220725, end: 20230307
  6. NICARDIPINE HYDROCHLORIDE [Suspect]
     Active Substance: NICARDIPINE HYDROCHLORIDE
     Indication: Hypertension
     Dosage: 100 MILLIGRAM, QD
     Dates: start: 20230308
  7. REPEVAX [Suspect]
     Active Substance: DIPHTHERIA AND TETANUS TOXOIDS AND ACELLULAR PERTUSSIS ADSORBED AND INACTIVATED POLIOVIRUS VACCINE
     Indication: Pertussis immunisation
     Dosage: 1 DOSAGE FORM, QD
     Route: 064
     Dates: start: 20230314, end: 20230314

REACTIONS (6)
  - Adverse event [Unknown]
  - Exposure during pregnancy [Recovered/Resolved]
  - Contraindicated product administered [Recovered/Resolved]
  - Maternal exposure during pregnancy [Recovered/Resolved]
  - Term birth [Recovered/Resolved]
  - Normal newborn [Recovered/Resolved]

NARRATIVE: CASE EVENT DATE: 20230403
